FAERS Safety Report 8789888 (Version 2)
Quarter: 2012Q4

REPORT INFORMATION
  Report Type: 
  Country: CO (occurrence: CO)
  Receive Date: 20120914
  Receipt Date: 20121023
  Transmission Date: 20130627
  Serious: Yes (Other)
  Sender: FDA-Public Use
  Company Number: CO-PFIZER INC-2012225530

PATIENT
  Age: 86 Year
  Sex: Male

DRUGS (7)
  1. DETRUSITOL SR [Suspect]
     Indication: PROSTATIC PAIN
     Dosage: 4 mg, 1x/day
     Route: 048
     Dates: start: 20120806
  2. DETRUSITOL SR [Suspect]
     Indication: PROSTATIC DISORDER
  3. DETRUSITOL SR [Suspect]
     Indication: HYPERTONIC BLADDER
  4. DETRUSITOL SR [Suspect]
     Indication: MUSCLE SPASMS
  5. QUETIAPINE FUMARATE [Suspect]
     Indication: DEMENTIA ALZHEIMER^S TYPE
     Dosage: 100 mg (half a tablet in the morning and half a tablet at night)
     Route: 048
     Dates: start: 20120806
  6. MEMANTINE [Concomitant]
     Indication: PROSTATIC DISORDER
     Dosage: 10 mg, 1x/day
     Route: 048
     Dates: start: 201205
  7. LOSARTAN [Concomitant]
     Indication: HYPERTENSION
     Dosage: 50 mg, 1x/day
     Route: 048

REACTIONS (5)
  - Haemorrhage urinary tract [Unknown]
  - Catheter site pain [Unknown]
  - Somnolence [Not Recovered/Not Resolved]
  - Device leakage [Not Recovered/Not Resolved]
  - Dry mouth [Not Recovered/Not Resolved]
